FAERS Safety Report 18080610 (Version 4)
Quarter: 2020Q3

REPORT INFORMATION
  Report Type: Spontaneous
  Country: SK (occurrence: SK)
  Receive Date: 20200728
  Receipt Date: 20200816
  Transmission Date: 20201103
  Serious: Yes (Hospitalization, Congenital Anomaly, Other)
  Sender: FDA-Public Use
  Company Number: NVSC2020SK208785

PATIENT
  Sex: Male
  Weight: 1.15 kg

DRUGS (14)
  1. FUROSEMIDE. [Suspect]
     Active Substance: FUROSEMIDE
     Dosage: MATERNAL DOSE:10 MG
     Route: 064
  2. EPOETIN THETA [Suspect]
     Active Substance: ERYTHROPOIETIN
     Indication: FOETAL EXPOSURE DURING PREGNANCY
     Dosage: MATERNAL DOSE:UNK
     Route: 064
  3. ALBUMIN [Suspect]
     Active Substance: ALBUMIN HUMAN
     Dosage: MATERNAL DOSE:100 ML, QD
     Route: 064
  4. FUROSEMIDE. [Suspect]
     Active Substance: FUROSEMIDE
     Dosage: MATERNAL DOSE:5 MG, 1?0?0
     Route: 064
  5. AMLODIPINE [Suspect]
     Active Substance: AMLODIPINE BESYLATE
     Dosage: MATERNAL DOSE: 5 MG Q24H
     Route: 064
  6. METHYLDOPA. [Suspect]
     Active Substance: METHYLDOPA
     Indication: FOETAL EXPOSURE DURING PREGNANCY
     Dosage: MATERNAL DOSE:250 MG, Q6H
     Route: 064
  7. AMLODIPINE [Suspect]
     Active Substance: AMLODIPINE BESYLATE
     Indication: FOETAL EXPOSURE DURING PREGNANCY
     Dosage: MATERNAL DOSE:UNK
     Route: 064
  8. AMLODIPINE [Suspect]
     Active Substance: AMLODIPINE BESYLATE
     Dosage: MATERNAL DOSE:5 MG, 1?0?0
     Route: 064
  9. FUROSEMIDE. [Suspect]
     Active Substance: FUROSEMIDE
     Indication: FOETAL EXPOSURE DURING PREGNANCY
     Dosage: MATERNAL DOSE:UNK
     Route: 064
  10. MAGNESIUM LACTICUM [Suspect]
     Active Substance: MAGNESIUM LACTATE
     Indication: FOETAL EXPOSURE DURING PREGNANCY
     Dosage: MATERNAL DOSE:500 MG, Q8H
     Route: 064
  11. ALBUMIN [Suspect]
     Active Substance: ALBUMIN HUMAN
     Indication: FOETAL EXPOSURE DURING PREGNANCY
     Dosage: MATERNAL DOSE:UNK
     Route: 064
  12. EPOETIN THETA [Suspect]
     Active Substance: ERYTHROPOIETIN
     Dosage: MATERNAL DOSE:2000 IU, QW
     Route: 064
  13. INSULIN [Suspect]
     Active Substance: INSULIN NOS
     Indication: FOETAL EXPOSURE DURING PREGNANCY
     Dosage: MATERNALL DOSE:UNK
     Route: 064
  14. NADROPARIN CALCIUM [Suspect]
     Active Substance: NADROPARIN CALCIUM
     Indication: FOETAL EXPOSURE DURING PREGNANCY
     Dosage: MATERNAL DOSE:0.4 ML, QD
     Route: 064

REACTIONS (9)
  - Low birth weight baby [Unknown]
  - Neonatal hypocalcaemia [Unknown]
  - Bronchopulmonary dysplasia [Unknown]
  - Umbilical hernia [Unknown]
  - Hypophosphataemia [Unknown]
  - Foetal exposure during pregnancy [Unknown]
  - Premature baby [Unknown]
  - Neonatal respiratory distress syndrome [Unknown]
  - Atrial septal defect [Unknown]
